FAERS Safety Report 26194743 (Version 1)
Quarter: 2025Q4

REPORT INFORMATION
  Report Type: Spontaneous
  Country: US (occurrence: US)
  Receive Date: 20251224
  Receipt Date: 20251224
  Transmission Date: 20260117
  Serious: No
  Sender: PFIZER
  Company Number: US-PFIZER INC-PV202500148742

PATIENT

DRUGS (1)
  1. PALBOCICLIB [Suspect]
     Active Substance: PALBOCICLIB
     Dosage: DOSE REDUCED BEYOND 75 MG

REACTIONS (3)
  - Asthenia [Unknown]
  - Memory impairment [Unknown]
  - Off label use [Unknown]
